FAERS Safety Report 7236813-0 (Version None)
Quarter: 2011Q1

REPORT INFORMATION
  Report Type: 
  Country: None (occurrence: None)
  Receive Date: 20110120
  Receipt Date: 20110112
  Transmission Date: 20110831
  Serious: No
  Sender: FDA-Public Use
  Company Number: US-B.I. PHARMACEUTICALS,INC./RIDGEFIELD-2011-BP-01168BP

PATIENT
  Age: 73 Year
  Sex: Female

DRUGS (6)
  1. TRIAMATERENE/HCTZ [Concomitant]
     Indication: FLUID RETENTION
     Dosage: 37.5 MG
  2. PRADAXA [Suspect]
     Indication: ATRIAL FIBRILLATION
     Dosage: 300 MG
     Route: 048
     Dates: start: 20110111
  3. LIPITOR [Concomitant]
     Indication: BLOOD CHOLESTEROL INCREASED
     Dosage: 40 MG
  4. LEVOTHYROXINE SODIUM [Concomitant]
     Indication: THYROID DISORDER
     Dosage: 75 MCG
  5. ATENOLOL [Concomitant]
     Indication: CARDIAC DISORDER
     Dosage: 100 MG
  6. DIGOXIN [Concomitant]
     Indication: CARDIAC DISORDER
     Dosage: 250 MCG

REACTIONS (2)
  - DIZZINESS [None]
  - NAUSEA [None]
